FAERS Safety Report 21119900 (Version 1)
Quarter: 2022Q3

REPORT INFORMATION
  Report Type: Spontaneous
  Country: US (occurrence: None)
  Receive Date: 20220721
  Receipt Date: 20220721
  Transmission Date: 20221027
  Serious: Yes (Disabling)
  Sender: FDA-Public Use
  Company Number: None

PATIENT
  Age: 78 Year
  Sex: Male

DRUGS (1)
  1. NUCALA [Suspect]
     Active Substance: MEPOLIZUMAB
     Dosage: 100MG OTHER SUBCUTANEOUS
     Route: 058
     Dates: start: 202206

REACTIONS (4)
  - Herpes zoster [None]
  - Eye disorder [None]
  - Blindness [None]
  - Intraocular pressure increased [None]

NARRATIVE: CASE EVENT DATE: 20220721
